FAERS Safety Report 6332029-0 (Version None)
Quarter: 2009Q3

REPORT INFORMATION
  Report Type: 
  Country: None (occurrence: None)
  Receive Date: 20090828
  Receipt Date: 20070613
  Transmission Date: 20100115
  Serious: Yes (Hospitalization, Other)
  Sender: FDA-Public Use
  Company Number: US-ASTRAZENECA-2006UW12032

PATIENT
  Age: 35 Year
  Sex: Female
  Weight: 61 kg

DRUGS (12)
  1. SEROQUEL [Suspect]
     Dosage: 400 MG TO 600 MG
     Route: 048
     Dates: start: 20010827
  2. ZYPREXA [Suspect]
     Dates: start: 19980805
  3. CLOZARIL [Concomitant]
  4. RISPERDAL [Concomitant]
     Dates: start: 19980925
  5. OLANZAPINE [Concomitant]
  6. PAXIL [Concomitant]
     Dates: start: 19980805
  7. TRAZODONE HCL [Concomitant]
     Dosage: 50 MG TO 200 MG
     Route: 048
     Dates: start: 19980331
  8. INSULIN [Concomitant]
     Dates: start: 20030722
  9. DEPAKOTE [Concomitant]
     Dosage: 1500 MG/DAY
     Dates: start: 20010827
  10. REMERON [Concomitant]
     Dates: start: 20010827
  11. LITHIUM CARBONATE [Concomitant]
     Dosage: 600 MG TO 900 MG
     Route: 048
     Dates: start: 19980331
  12. CARBAMAZEPINE [Concomitant]
     Dates: start: 20010827

REACTIONS (10)
  - CONVULSION [None]
  - DIABETES MELLITUS [None]
  - DIABETES MELLITUS INADEQUATE CONTROL [None]
  - DIABETIC COMA [None]
  - DIABETIC KETOACIDOSIS [None]
  - HYPERGLYCAEMIA [None]
  - HYPOGLYCAEMIA [None]
  - METABOLIC ACIDOSIS [None]
  - PANCREATITIS [None]
  - TYPE 1 DIABETES MELLITUS [None]
